FAERS Safety Report 14229676 (Version 1)
Quarter: 2017Q4

REPORT INFORMATION
  Report Type: Spontaneous
  Country: US (occurrence: None)
  Receive Date: 20171128
  Receipt Date: 20171128
  Transmission Date: 20180321
  Serious: Yes (Disabling)
  Sender: FDA-Public Use
  Company Number: None

PATIENT
  Age: 76 Year
  Sex: Female
  Weight: 49.44 kg

DRUGS (11)
  1. POTASSIUM [Concomitant]
     Active Substance: POTASSIUM
  2. LISINOPRIL. [Concomitant]
     Active Substance: LISINOPRIL
  3. MORPHINE [Concomitant]
     Active Substance: MORPHINE
  4. METOPROLOL. [Concomitant]
     Active Substance: METOPROLOL
  5. VELCADE [Concomitant]
     Active Substance: BORTEZOMIB
  6. TYLENOL [Concomitant]
     Active Substance: ACETAMINOPHEN
  7. REVLIMID [Concomitant]
     Active Substance: LENALIDOMIDE
  8. LEVOTHYROXINE. [Concomitant]
     Active Substance: LEVOTHYROXINE
  9. MAGNESIUM [Concomitant]
     Active Substance: MAGNESIUM
  10. RESTASIS [Suspect]
     Active Substance: CYCLOSPORINE
     Indication: DRY EYE
     Route: 047
     Dates: start: 20170420, end: 20170421
  11. CALCIUM [Concomitant]
     Active Substance: CALCIUM

REACTIONS (3)
  - Eye pain [None]
  - Loss of personal independence in daily activities [None]
  - Vision blurred [None]

NARRATIVE: CASE EVENT DATE: 20170420
